FAERS Safety Report 23135576 (Version 3)
Quarter: 2025Q2

REPORT INFORMATION
  Report Type: Spontaneous
  Country: GB (occurrence: GB)
  Receive Date: 20231101
  Receipt Date: 20250603
  Transmission Date: 20250717
  Serious: Yes (Hospitalization, Other)
  Sender: ABBVIE
  Company Number: GB-TAKEDA-2021TUS082084

PATIENT
  Age: 74 Year
  Sex: Male

DRUGS (32)
  1. DEXAMETHASONE [Suspect]
     Active Substance: DEXAMETHASONE
     Indication: Product used for unknown indication
     Route: 065
  2. NINLARO [Suspect]
     Active Substance: IXAZOMIB CITRATE
     Indication: Product used for unknown indication
     Dosage: 2.3 MILLIGRAM, 1/WEEK
     Route: 065
  3. PITOFENONE HYDROCHLORIDE [Suspect]
     Active Substance: PITOFENONE HYDROCHLORIDE
     Indication: Product used for unknown indication
     Dosage: UNKNOWN, QD (UNK, BID)
     Route: 065
  4. CALCIUM CARBONATE\CHOLECALCIFEROL [Suspect]
     Active Substance: CALCIUM CARBONATE\CHOLECALCIFEROL
     Indication: Product used for unknown indication
     Dosage: UNKNOWN, BID
     Route: 065
  5. CALCIUM CARBONATE\CHOLECALCIFEROL [Suspect]
     Active Substance: CALCIUM CARBONATE\CHOLECALCIFEROL
     Indication: Product used for unknown indication
     Route: 065
  6. EPOETIN BETA [Suspect]
     Active Substance: ERYTHROPOIETIN
     Indication: Product used for unknown indication
     Dosage: 2000 INTERNATIONAL UNIT, 2/WEEK
     Route: 058
  7. METOCLOPRAMIDE [Suspect]
     Active Substance: METOCLOPRAMIDE
     Indication: Product used for unknown indication
     Route: 065
  8. METOCLOPRAMIDE [Suspect]
     Active Substance: METOCLOPRAMIDE
     Indication: Product used for unknown indication
     Dosage: 10 MILLIGRAM, TID
     Route: 065
  9. XARELTO [Suspect]
     Active Substance: RIVAROXABAN
     Indication: Product used for unknown indication
     Route: 065
  10. XARELTO [Suspect]
     Active Substance: RIVAROXABAN
     Indication: Product used for unknown indication
     Route: 065
  11. XARELTO [Suspect]
     Active Substance: RIVAROXABAN
     Indication: Product used for unknown indication
     Dosage: 10 MILLIGRAM, QD
     Route: 065
  12. OMEPRAZOLE [Suspect]
     Active Substance: OMEPRAZOLE
     Indication: Product used for unknown indication
     Dosage: 20 MILLIGRAM, QD
     Route: 065
  13. REVLIMID [Suspect]
     Active Substance: LENALIDOMIDE
     Indication: Product used for unknown indication
     Route: 065
  14. REVLIMID [Suspect]
     Active Substance: LENALIDOMIDE
     Indication: Product used for unknown indication
     Dosage: 15 MILLIGRAM;
     Route: 065
  15. REVLIMID [Suspect]
     Active Substance: LENALIDOMIDE
     Indication: Product used for unknown indication
     Route: 065
  16. REVLIMID [Suspect]
     Active Substance: LENALIDOMIDE
     Indication: Product used for unknown indication
     Route: 065
  17. REVLIMID [Suspect]
     Active Substance: LENALIDOMIDE
     Indication: Product used for unknown indication
     Dosage: 15 MG, QD (ON DAYS 1-21)
     Route: 065
  18. REVLIMID [Suspect]
     Active Substance: LENALIDOMIDE
     Indication: Product used for unknown indication
     Route: 065
  19. ACYCLOVIR [Suspect]
     Active Substance: ACYCLOVIR
     Indication: Product used for unknown indication
     Dosage: 400 MG, BID (800 MG, ONCE DAILY)
     Route: 065
  20. ACYCLOVIR [Suspect]
     Active Substance: ACYCLOVIR
     Indication: Product used for unknown indication
     Dosage: 400 MILLIGRAM, BID
     Route: 065
  21. ACYCLOVIR [Suspect]
     Active Substance: ACYCLOVIR
     Indication: Product used for unknown indication
     Dosage: 20 MILLIGRAM, BID
     Route: 065
  22. LOPERAMIDE [Suspect]
     Active Substance: LOPERAMIDE
     Indication: Product used for unknown indication
     Route: 065
  23. LIDOCAINE [Suspect]
     Active Substance: LIDOCAINE
     Indication: Product used for unknown indication
     Dosage: 400 MG, BID (800 MG, ONCE DAILY)
     Route: 065
  24. LIDOCAINE [Suspect]
     Active Substance: LIDOCAINE
     Indication: Product used for unknown indication
     Dosage: 20 MILLIGRAM, BID
     Route: 065
  25. COTRIMOXAZOLE [Suspect]
     Active Substance: SULFAMETHOXAZOLE\TRIMETHOPRIM
     Indication: Product used for unknown indication
     Route: 065
  26. COTRIMOXAZOLE [Suspect]
     Active Substance: SULFAMETHOXAZOLE\TRIMETHOPRIM
     Indication: Product used for unknown indication
     Route: 065
  27. FENPIVERINIUM BROMIDE [Suspect]
     Active Substance: FENPIVERINIUM BROMIDE
     Indication: Product used for unknown indication
     Route: 065
  28. SIMETHICONE (DIMETHICONE) [Suspect]
     Active Substance: DIMETHICONE
     Indication: Product used for unknown indication
     Route: 065
  29. SIMETHICONE (DIMETHICONE) [Suspect]
     Active Substance: DIMETHICONE
     Indication: Product used for unknown indication
     Route: 065
  30. INTERFERON ALFA-2B [Suspect]
     Active Substance: INTERFERON ALFA-2B
     Indication: Product used for unknown indication
     Dosage: 400 MG, BID (800 MG, ONCE DAILY)
     Route: 065
  31. METAMIZOLE [Suspect]
     Active Substance: METAMIZOLE
     Indication: Product used for unknown indication
     Dosage: QD (UNKNOWN, BID)
     Route: 065
  32. PANCREATIN [Suspect]
     Active Substance: PANCRELIPASE
     Indication: Product used for unknown indication
     Route: 065

REACTIONS (18)
  - Cerebrovascular accident [Unknown]
  - Productive cough [Unknown]
  - Hypoaesthesia [Unknown]
  - Neutrophil count abnormal [Unknown]
  - Limb discomfort [Unknown]
  - Decreased appetite [Unknown]
  - Inappropriate schedule of product administration [Unknown]
  - Gait disturbance [Unknown]
  - Pyrexia [Unknown]
  - Musculoskeletal chest pain [Unknown]
  - Chromaturia [Unknown]
  - Fall [Unknown]
  - Balance disorder [Unknown]
  - Malaise [Unknown]
  - Confusional state [Unknown]
  - Feeling cold [Unknown]
  - Hypoaesthesia [Unknown]
  - Fall [Unknown]
